FAERS Safety Report 4596713-1 (Version None)
Quarter: 2005Q1

REPORT INFORMATION
  Report Type: 
  Country: None (occurrence: None)
  Receive Date: 20050302
  Receipt Date: 20030227
  Transmission Date: 20050727
  Serious: Yes (Disabling)
  Sender: FDA-Public Use
  Company Number: JP-GLAXOSMITHKLINE-B0293676A

PATIENT
  Age: 24 Year
  Sex: Male

DRUGS (15)
  1. ABACAVIR [Suspect]
     Indication: HIV INFECTION
     Dosage: 600MG PER DAY
     Route: 048
     Dates: start: 19990329
  2. DIDANOSINE [Suspect]
     Indication: HIV INFECTION
     Dosage: 250MG PER DAY
     Route: 048
     Dates: start: 19951030
  3. STAVUDINE [Suspect]
     Indication: HIV INFECTION
     Dosage: 80MG PER DAY
     Dates: start: 19980114
  4. EFAVIRENZ [Suspect]
     Indication: HIV INFECTION
     Dosage: 600MG PER DAY
     Route: 048
     Dates: start: 19990329, end: 20020303
  5. NELFINAVIR [Suspect]
     Indication: HIV INFECTION
     Dosage: 600MG PER DAY
     Dates: start: 19970804, end: 20020303
  6. LOPERAMIDE HYDROCHLORIDE [Concomitant]
     Dosage: 1MG PER DAY
     Dates: start: 20010401
  7. SOMATROPIN [Concomitant]
     Indication: WEIGHT DECREASED
     Dates: start: 20010423
  8. RETROVIR [Concomitant]
     Indication: HIV INFECTION
     Dates: end: 19971111
  9. INVIRASE [Concomitant]
     Indication: HIV INFECTION
     Dates: start: 19970211, end: 19980311
  10. EPIVIR [Concomitant]
     Indication: HIV INFECTION
     Dates: start: 19970509, end: 19981116
  11. NORVIR [Concomitant]
     Indication: HIV INFECTION
     Dates: start: 19960909, end: 19980311
  12. HIVID [Concomitant]
     Indication: HIV INFECTION
     Dates: start: 19970211, end: 19990329
  13. PROZEI [Concomitant]
     Indication: HIV INFECTION
     Dates: start: 19990510, end: 19990817
  14. RECOMBINATE [Concomitant]
     Indication: FACTOR VIII DEFICIENCY
     Route: 042
     Dates: start: 20010401
  15. KALETRA [Concomitant]
     Indication: HIV INFECTION
     Dosage: 6CAP PER DAY
     Dates: start: 20020304

REACTIONS (6)
  - ARTHRALGIA [None]
  - ASEPTIC NECROSIS BONE [None]
  - DIFFICULTY IN WALKING [None]
  - GAIT DISTURBANCE [None]
  - HYPERLACTACIDAEMIA [None]
  - JOINT DISLOCATION [None]
